FAERS Safety Report 25861201 (Version 1)
Quarter: 2025Q3

REPORT INFORMATION
  Report Type: Other
  Country: US (occurrence: IN)
  Receive Date: 20250929
  Receipt Date: 20250929
  Transmission Date: 20251021
  Serious: Yes (unspecified)
  Sender: SAPTALIS PHARMACEUTICALS LLC
  Company Number: IN-Saptalis Pharmaceuticals LLC-2185554

PATIENT
  Age: 60 Year
  Sex: Female

DRUGS (1)
  1. FLUOXETINE HYDROCHLORIDE [Suspect]
     Active Substance: FLUOXETINE HYDROCHLORIDE

REACTIONS (1)
  - Drug-induced liver injury [Recovered/Resolved]
